FAERS Safety Report 5956095-7 (Version None)
Quarter: 2008Q4

REPORT INFORMATION
  Report Type: 
  Country: None (occurrence: None)
  Receive Date: 20081118
  Receipt Date: 20081110
  Transmission Date: 20090506
  Serious: Yes (Other)
  Sender: FDA-Public Use
  Company Number: US-JNJFOC-20081002327

PATIENT
  Sex: Female
  Weight: 101.79 kg

DRUGS (7)
  1. REMICADE [Suspect]
     Route: 042
  2. REMICADE [Suspect]
     Indication: CROHN'S DISEASE
     Dosage: INFUSION 1 AND 2 ON UNSPECIFIED DATES
     Route: 042
  3. FLAGYL [Concomitant]
  4. PENTASA [Concomitant]
  5. ENTOCORT EC [Concomitant]
  6. MERCAPTOPURINE [Concomitant]
  7. TYLENOL (CAPLET) [Concomitant]
     Indication: PREMEDICATION

REACTIONS (5)
  - BACK PAIN [None]
  - DRUG EXPOSURE DURING PREGNANCY [None]
  - HYPERHIDROSIS [None]
  - INFUSION RELATED REACTION [None]
  - RESPIRATORY DISTRESS [None]
